FAERS Safety Report 10697690 (Version 1)
Quarter: 2014Q4

REPORT INFORMATION
  Report Type: Spontaneous
  Country: US (occurrence: None)
  Receive Date: 20141223
  Receipt Date: 20141223
  Transmission Date: 20150529
  Serious: No
  Sender: FDA-Public Use
  Company Number: 1000071553

PATIENT
  Age: 83 Year
  Sex: Female

DRUGS (15)
  1. SYNTHROID [Concomitant]
     Active Substance: LEVOTHYROXINE SODIUM
  2. FISH OIL [Concomitant]
     Active Substance: FISH OIL
  3. LINZESS [Suspect]
     Active Substance: LINACLOTIDE
     Indication: CONSTIPATION
     Route: 048
     Dates: start: 20141004, end: 20141011
  4. KEFLEX [Concomitant]
     Active Substance: CEPHALEXIN
  5. CITRACAL (CALCIUM CITRATE) [Concomitant]
     Active Substance: CALCIUM CITRATE
  6. OCUVITE (LUTEIN, ZEAXANTHIN) [Concomitant]
  7. LINZESS [Suspect]
     Active Substance: LINACLOTIDE
     Indication: CONSTIPATION
     Route: 048
     Dates: start: 20141012, end: 20141014
  8. XANAX [Concomitant]
     Active Substance: ALPRAZOLAM
  9. PROBIOTIC [Concomitant]
     Active Substance: PROBIOTICS NOS
  10. CRANBERRY EXTRACT [Concomitant]
  11. AZILECT (RASAGILINE MESILATE) [Concomitant]
  12. TRIHEXYPHENIDYL [Concomitant]
     Active Substance: TRIHEXYPHENIDYL
  13. MVI (VITAMINS NOS) [Concomitant]
  14. SINEMET [Concomitant]
     Active Substance: CARBIDOPA\LEVODOPA
  15. CO Q10 (UBIDECARENONE) [Concomitant]

REACTIONS (3)
  - Rash [None]
  - Off label use [None]
  - Drug ineffective [None]

NARRATIVE: CASE EVENT DATE: 201410
